FAERS Safety Report 5816966-9 (Version None)
Quarter: 2008Q3

REPORT INFORMATION
  Report Type: 
  Country: None (occurrence: None)
  Receive Date: 20080722
  Receipt Date: 20080717
  Transmission Date: 20090109
  Serious: Yes (Death, Hospitalization)
  Sender: FDA-Public Use
  Company Number: PHHY2008GB14256

PATIENT
  Age: 47 Year
  Sex: Male

DRUGS (6)
  1. CLOZAPINE [Suspect]
     Indication: SCHIZOPHRENIA
     Dosage: UNK
     Route: 048
     Dates: start: 19910925, end: 20050322
  2. ZAPONEX [Suspect]
     Indication: SCHIZOPHRENIA
     Dosage: 400 MG, BID
     Route: 048
     Dates: start: 20050323
  3. DIAZEPAM [Concomitant]
     Indication: AGITATION
     Dosage: 5 MG, QD
     Dates: start: 20040101
  4. FYBOGEL [Concomitant]
     Indication: CONSTIPATION
     Dosage: 1 DF, QD
     Dates: start: 19960101
  5. LACTULOSE [Concomitant]
     Indication: CONSTIPATION
     Dosage: 10 ML, BID
     Dates: start: 19960101
  6. VALPROATE SODIUM [Concomitant]
     Indication: SCHIZOPHRENIA
     Dosage: 400 MG, BID

REACTIONS (4)
  - CONVULSION [None]
  - RENAL FAILURE CHRONIC [None]
  - TRANSURETHRAL PROSTATECTOMY [None]
  - URINARY TRACT OBSTRUCTION [None]
